FAERS Safety Report 17472746 (Version 1)
Quarter: 2020Q1

REPORT INFORMATION
  Report Type: Spontaneous
  Country: US (occurrence: US)
  Receive Date: 20200217
  Receipt Date: 20200217
  Transmission Date: 20200409
  Serious: No
  Sender: FDA-Public Use
  Company Number: None

PATIENT
  Age: 71 Year
  Sex: Male
  Weight: 89 kg

DRUGS (2)
  1. CEFTRIAXONE (CEFTRIAXONE NA 1GM/VIL INJ) [Suspect]
     Active Substance: CEFTRIAXONE SODIUM
     Dosage: ?          OTHER STRENGTH:1 GM/VIL;?
     Route: 042
  2. CEFTRIAXONE (CEFTRIAXONE NA 1GM/VIL INJ) [Suspect]
     Active Substance: CEFTRIAXONE SODIUM
     Indication: URINARY TRACT INFECTION
     Dosage: ?          OTHER STRENGTH:1 GM/VIL;?
     Route: 042
     Dates: start: 20180406, end: 20180406

REACTIONS (5)
  - Anaphylactic reaction [None]
  - Pyrexia [None]
  - Hypersensitivity [None]
  - Pulmonary oedema [None]
  - Angioedema [None]

NARRATIVE: CASE EVENT DATE: 20180406
